FAERS Safety Report 5398120-0 (Version None)
Quarter: 2007Q3

REPORT INFORMATION
  Report Type: 
  Country: None (occurrence: None)
  Receive Date: 20070726
  Receipt Date: 20070714
  Transmission Date: 20080115
  Serious: Yes (Death, Hospitalization)
  Sender: FDA-Public Use
  Company Number: US-PFIZER INC-2007057352

PATIENT
  Age: 55 Year
  Sex: Female
  Weight: 73 kg

DRUGS (3)
  1. SUTENT [Suspect]
     Indication: SQUAMOUS CELL CARCINOMA
     Route: 048
     Dates: start: 20061215, end: 20070109
  2. SUTENT [Suspect]
     Dates: start: 20070130, end: 20070206
  3. LOVENOX [Suspect]
     Route: 058

REACTIONS (10)
  - DEATH [None]
  - HAEMOGLOBIN [None]
  - HAEMORRHAGE [None]
  - HYPOALBUMINAEMIA [None]
  - HYPOCALCAEMIA [None]
  - HYPONATRAEMIA [None]
  - INFECTION [None]
  - INTERNATIONAL NORMALISED RATIO [None]
  - PLATELET COUNT [None]
  - URINARY TRACT INFECTION [None]
